FAERS Safety Report 4559023-4 (Version None)
Quarter: 2005Q1

REPORT INFORMATION
  Report Type: 
  Country: None (occurrence: None)
  Receive Date: 20050124
  Receipt Date: 20050110
  Transmission Date: 20050727
  Serious: Yes (Hospitalization)
  Sender: FDA-Public Use
  Company Number: FR-JNJFOC-20040200649

PATIENT
  Age: 60 Year
  Sex: Male
  Weight: 91 kg

DRUGS (7)
  1. REMICADE [Suspect]
     Route: 042
  2. REMICADE [Suspect]
     Indication: ANKYLOSING SPONDYLITIS
     Route: 042
  3. VIOXX [Concomitant]
     Indication: ANKYLOSING SPONDYLITIS
     Route: 049
  4. DIANTALVIC [Concomitant]
     Route: 049
  5. DIANTALVIC [Concomitant]
     Indication: ANKYLOSING SPONDYLITIS
     Route: 049
  6. LANZOR [Concomitant]
     Route: 049
  7. CORTANCYL [Concomitant]
     Route: 049

REACTIONS (3)
  - ANXIETY [None]
  - CHEST PAIN [None]
  - DYSPNOEA [None]
